FAERS Safety Report 21872282 (Version 3)
Quarter: 2024Q2

REPORT INFORMATION
  Report Type: Spontaneous
  Country: US (occurrence: US)
  Receive Date: 20230117
  Receipt Date: 20240610
  Transmission Date: 20240716
  Serious: Yes (Hospitalization, Other)
  Sender: FDA-Public Use
  Company Number: US-ABBVIE-4264626

PATIENT
  Sex: Female
  Weight: 77.11 kg

DRUGS (6)
  1. SYNTHROID [Suspect]
     Active Substance: LEVOTHYROXINE SODIUM
     Indication: Thyroid mass
     Route: 048
     Dates: start: 1976
  2. SYNTHROID [Suspect]
     Active Substance: LEVOTHYROXINE SODIUM
     Indication: Thyroid mass
     Route: 048
  3. SYNTHROID [Suspect]
     Active Substance: LEVOTHYROXINE SODIUM
     Indication: Thyroid mass
     Route: 048
  4. AVAPRO [Concomitant]
     Active Substance: IRBESARTAN
     Indication: Hypertension
  5. LYRICA [Concomitant]
     Active Substance: PREGABALIN
     Indication: Musculoskeletal disorder
  6. VITAMIN D3 [Concomitant]
     Active Substance: CHOLECALCIFEROL
     Indication: Vitamin supplementation

REACTIONS (7)
  - Breast cancer [Recovered/Resolved]
  - Cellulitis [Recovered/Resolved]
  - Lymphoedema [Not Recovered/Not Resolved]
  - Muscular weakness [Unknown]
  - Intervertebral disc protrusion [Not Recovered/Not Resolved]
  - Hypoaesthesia [Not Recovered/Not Resolved]
  - Product contamination [Not Recovered/Not Resolved]

NARRATIVE: CASE EVENT DATE: 20080101
